FAERS Safety Report 12639999 (Version 1)
Quarter: 2016Q3

REPORT INFORMATION
  Report Type: Spontaneous
  Country: US (occurrence: None)
  Receive Date: 20160809
  Receipt Date: 20160809
  Transmission Date: 20161109
  Serious: No
  Sender: FDA-Public Use
  Company Number: None

PATIENT
  Sex: Female

DRUGS (1)
  1. AMITRIPTYLINE HCL [Suspect]
     Active Substance: AMITRIPTYLINE

REACTIONS (3)
  - Drug dose omission [None]
  - Drug dispensing error [None]
  - Intentional product use issue [None]

NARRATIVE: CASE EVENT DATE: 2015
